FAERS Safety Report 9137450 (Version 1)
Quarter: 2013Q1

REPORT INFORMATION
  Report Type: Spontaneous
  Country: US (occurrence: US)
  Receive Date: 20130304
  Receipt Date: 20130304
  Transmission Date: 20140127
  Serious: No
  Sender: FDA-Public Use
  Company Number: US-COVIDIEN/TYCO HEALTHCARE/MALLINCKRODT-T201300354

PATIENT
  Age: 27 None
  Sex: Female

DRUGS (1)
  1. SODIUM IODIDE (I 123) (200) [Suspect]
     Indication: IMAGING PROCEDURE
     Dosage: 200 UCI, SINGLE
     Dates: start: 20130123, end: 20130123

REACTIONS (1)
  - Drug ineffective [Unknown]
